FAERS Safety Report 18269436 (Version 6)
Quarter: 2022Q1

REPORT INFORMATION
  Report Type: Report from Study
  Country: ES (occurrence: ES)
  Receive Date: 20200915
  Receipt Date: 20220211
  Transmission Date: 20220423
  Serious: Yes (Hospitalization)
  Sender: FDA-Public Use
  Company Number: ES-ABBVIE-20P-144-3557449-00

PATIENT
  Age: 45 Year
  Sex: Female
  Weight: 106 kg

DRUGS (20)
  1. ELSUBRUTINIB [Suspect]
     Active Substance: ELSUBRUTINIB
     Indication: Systemic lupus erythematosus
     Route: 048
     Dates: start: 20200806, end: 20200901
  2. UPADACITINIB [Suspect]
     Active Substance: UPADACITINIB
     Indication: Systemic lupus erythematosus
     Route: 048
     Dates: start: 20200806, end: 20200901
  3. HYDROXYCHLOROQUINE SULFATE [Concomitant]
     Active Substance: HYDROXYCHLOROQUINE SULFATE
     Indication: Systemic lupus erythematosus
     Route: 048
     Dates: start: 20170330, end: 20171018
  4. HYDROXYCHLOROQUINE SULFATE [Concomitant]
     Active Substance: HYDROXYCHLOROQUINE SULFATE
     Route: 048
     Dates: start: 20171019
  5. SINTROM (ACENOCUMAROL) [Concomitant]
     Indication: Antiphospholipid syndrome
     Route: 048
     Dates: start: 20190401
  6. AZATHIOPRINE SODIUM [Concomitant]
     Active Substance: AZATHIOPRINE SODIUM
     Indication: Systemic lupus erythematosus
     Route: 048
     Dates: start: 20190228, end: 20190329
  7. AZATHIOPRINE SODIUM [Concomitant]
     Active Substance: AZATHIOPRINE SODIUM
     Route: 048
     Dates: start: 20190329
  8. PREDNISONE [Concomitant]
     Active Substance: PREDNISONE
     Indication: Systemic lupus erythematosus
     Route: 048
     Dates: start: 20190513
  9. CALCIFEDIOL [Concomitant]
     Active Substance: CALCIFEDIOL
     Indication: Vitamin D deficiency
     Route: 048
     Dates: start: 20190626
  10. ADIAVAL [Concomitant]
     Indication: Vitamin D deficiency
     Dosage: 1000MG/880UI
     Route: 048
     Dates: start: 20190626
  11. PALEXIA [Concomitant]
     Active Substance: TAPENTADOL HYDROCHLORIDE
     Indication: Systemic lupus erythematosus
     Route: 048
     Dates: start: 20190116
  12. PREGABALIN [Concomitant]
     Active Substance: PREGABALIN
     Indication: Anxiety disorder
     Route: 048
     Dates: start: 20110216
  13. VENLAFAXINE HYDROCHLORIDE [Concomitant]
     Active Substance: VENLAFAXINE HYDROCHLORIDE
     Indication: Anxiety disorder
     Route: 048
     Dates: start: 20181214
  14. FLUOXETINE HYDROCHLORIDE [Concomitant]
     Active Substance: FLUOXETINE HYDROCHLORIDE
     Indication: Anxiety disorder
     Route: 048
     Dates: start: 20110216
  15. CLORAZEPATE DIPOTASSIUM [Concomitant]
     Active Substance: CLORAZEPATE DIPOTASSIUM
     Indication: Anxiety disorder
     Route: 048
     Dates: start: 20100216
  16. LORMETAZEPAM [Concomitant]
     Active Substance: LORMETAZEPAM
     Indication: Anxiety disorder
     Route: 048
     Dates: start: 20190402
  17. ALPRAZOLAM [Concomitant]
     Active Substance: ALPRAZOLAM
     Indication: Anxiety disorder
     Route: 048
     Dates: start: 20160915
  18. QUETIAPINE [Concomitant]
     Active Substance: QUETIAPINE
     Indication: Anxiety disorder
     Route: 048
     Dates: start: 20180719
  19. PANTOPRAZOLE SODIUM [Concomitant]
     Active Substance: PANTOPRAZOLE SODIUM
     Indication: Prophylaxis against gastrointestinal ulcer
     Route: 048
     Dates: start: 20130315
  20. BISOPROLOL [Concomitant]
     Active Substance: BISOPROLOL
     Indication: Sinus tachycardia
     Route: 048
     Dates: start: 20170911

REACTIONS (1)
  - Neutropenia [Not Recovered/Not Resolved]

NARRATIVE: CASE EVENT DATE: 20200820
